FAERS Safety Report 7831830-1 (Version None)
Quarter: 2011Q4

REPORT INFORMATION
  Report Type: 
  Country: None (occurrence: None)
  Receive Date: 20111021
  Receipt Date: 20111012
  Transmission Date: 20120403
  Serious: Yes (Other)
  Sender: FDA-Public Use
  Company Number: US-ASTRAZENECA-2011SE61684

PATIENT
  Age: 303 Month
  Sex: Female

DRUGS (4)
  1. ZOMIG [Interacting]
     Route: 048
     Dates: start: 20110901
  2. TOPAMAX [Concomitant]
  3. VIMPAT [Interacting]
     Route: 065
     Dates: start: 20110801
  4. ZOMIG [Suspect]
     Route: 048

REACTIONS (6)
  - FLUSHING [None]
  - DYSPNOEA [None]
  - SEROTONIN SYNDROME [None]
  - FEAR [None]
  - CHEST DISCOMFORT [None]
  - DRUG INTERACTION [None]
